FAERS Safety Report 24431011 (Version 2)
Quarter: 2024Q4

REPORT INFORMATION
  Report Type: Spontaneous
  Country: IT (occurrence: IT)
  Receive Date: 20241014
  Receipt Date: 20241106
  Transmission Date: 20250114
  Serious: Yes (Hospitalization)
  Sender: ACCORD
  Company Number: None

PATIENT
  Age: 64 Year
  Sex: Female
  Weight: 53 kg

DRUGS (4)
  1. CARBOPLATIN [Suspect]
     Active Substance: CARBOPLATIN
     Indication: Breast cancer
     Dosage: CARBOPLATIN 120 MG 1 TIME PER WEEK.
     Dates: start: 20240626, end: 20240827
  2. PEMBROLIZUMAB [Suspect]
     Active Substance: PEMBROLIZUMAB
     Indication: Breast cancer
     Dosage: PEMBROLIZUMAB 200 MG EVERY 21 DAYS.
     Dates: start: 20240626, end: 20240827
  3. PACLITAXEL [Concomitant]
     Active Substance: PACLITAXEL
  4. PANTOPRAZOLE [Concomitant]
     Active Substance: PANTOPRAZOLE

REACTIONS (1)
  - Tubulointerstitial nephritis [Recovering/Resolving]

NARRATIVE: CASE EVENT DATE: 20240904
